FAERS Safety Report 13886725 (Version 3)
Quarter: 2018Q1

REPORT INFORMATION
  Report Type: Spontaneous
  Country: IT (occurrence: IT)
  Receive Date: 20170821
  Receipt Date: 20180301
  Transmission Date: 20180508
  Serious: Yes (Other)
  Sender: FDA-Public Use
  Company Number: IT-JNJFOC-20170812070

PATIENT
  Age: 64 Year
  Sex: Female

DRUGS (1)
  1. HALDOL [Suspect]
     Active Substance: HALOPERIDOL
     Indication: INTENTIONAL SELF-INJURY
     Route: 048
     Dates: start: 20170813, end: 20170813

REACTIONS (6)
  - Drug abuse [Recovered/Resolved]
  - Intentional overdose [Recovered/Resolved]
  - Dyskinesia [Recovered/Resolved]
  - Sopor [Unknown]
  - Cognitive disorder [Recovered/Resolved]
  - Psychomotor retardation [Unknown]

NARRATIVE: CASE EVENT DATE: 20170813
